FAERS Safety Report 6186714-4 (Version None)
Quarter: 2009Q2

REPORT INFORMATION
  Report Type: 
  Country: None (occurrence: None)
  Receive Date: 20090508
  Receipt Date: 20090508
  Transmission Date: 20091009
  Serious: Yes (Other)
  Sender: FDA-Public Use
  Company Number: None

PATIENT
  Age: 71 Year
  Sex: Female
  Weight: 67.586 kg

DRUGS (2)
  1. DIGOXIN [Suspect]
     Indication: PALPITATIONS
     Dosage: 0.25 MG 1 TAB A DAY4-5 YEARS
     Dates: start: 20050101, end: 20090401
  2. DIGOXIN [Suspect]
     Indication: SYNCOPE
     Dosage: 0.25 MG 1 TAB A DAY4-5 YEARS
     Dates: start: 20050101, end: 20090401

REACTIONS (7)
  - COLD SWEAT [None]
  - HEART RATE INCREASED [None]
  - IMPAIRED DRIVING ABILITY [None]
  - LOSS OF CONSCIOUSNESS [None]
  - NAUSEA [None]
  - POOR QUALITY DRUG ADMINISTERED [None]
  - THERAPEUTIC AGENT TOXICITY [None]
